FAERS Safety Report 25600391 (Version 2)
Quarter: 2025Q3

REPORT INFORMATION
  Report Type: Report from Study
  Country: US (occurrence: US)
  Receive Date: 20250724
  Receipt Date: 20250922
  Transmission Date: 20251020
  Serious: No
  Sender: SUNOVION
  Company Number: US-SMPA-2025SPA008884AA

PATIENT
  Age: 67 Year
  Sex: Male

DRUGS (2)
  1. ORGOVYX [Suspect]
     Active Substance: RELUGOLIX
     Indication: Prostate cancer
     Route: 048
     Dates: start: 20240201, end: 20240201
  2. ORGOVYX [Suspect]
     Active Substance: RELUGOLIX
     Route: 048

REACTIONS (12)
  - Arthropathy [Unknown]
  - Muscular weakness [Unknown]
  - Cyanopsia [Unknown]
  - Gait disturbance [Unknown]
  - Muscle spasms [Unknown]
  - Tendon disorder [Unknown]
  - Erectile dysfunction [Unknown]
  - Loss of libido [Unknown]
  - Fatigue [Unknown]
  - Asthenia [Unknown]
  - Myalgia [Unknown]
  - Arthralgia [Unknown]
